FAERS Safety Report 9768349 (Version 2)
Quarter: 2014Q1

REPORT INFORMATION
  Report Type: Spontaneous
  Country: US (occurrence: US)
  Receive Date: 20131217
  Receipt Date: 20140117
  Transmission Date: 20141002
  Serious: Yes (Death, Other)
  Sender: FDA-Public Use
  Company Number: US-GILEAD-2013-0090069

PATIENT
  Sex: Male

DRUGS (5)
  1. LETAIRIS [Suspect]
     Indication: PULMONARY HYPERTENSION
     Dosage: 10 MG, QD
     Route: 048
     Dates: start: 20111205
  2. LETAIRIS [Suspect]
     Indication: PULMONARY HYPERTENSION
  3. LETAIRIS [Suspect]
     Indication: CARDIAC DISORDER
  4. LETAIRIS [Suspect]
     Indication: EXPOSURE TO TOXIC AGENT
  5. REVATIO [Concomitant]
     Dosage: UNK

REACTIONS (3)
  - Gastrointestinal haemorrhage [Fatal]
  - Renal failure [Fatal]
  - Cardiac failure congestive [Fatal]
